FAERS Safety Report 6024109-4 (Version None)
Quarter: 2008Q4

REPORT INFORMATION
  Report Type: 
  Country: None (occurrence: None)
  Receive Date: 20081229
  Receipt Date: 20081210
  Transmission Date: 20090506
  Serious: Yes (Other)
  Sender: FDA-Public Use
  Company Number: JPI-P-005601

PATIENT
  Age: 52 Year
  Sex: Female

DRUGS (5)
  1. XYREM [Suspect]
     Indication: NARCOLEPSY
     Dosage: ORAL
     Route: 048
     Dates: start: 20080314, end: 20080101
  2. ROPINIROLE HYDROCHLORIDE [Concomitant]
  3. LEVOTHYROXINE SODIUM [Concomitant]
  4. FUROSEMIDE [Concomitant]
  5. CYCLOBENZAPRINE HCL [Concomitant]

REACTIONS (6)
  - ANXIETY [None]
  - CONSTIPATION [None]
  - CONVULSION [None]
  - DISTURBANCE IN ATTENTION [None]
  - MEMORY IMPAIRMENT [None]
  - NERVOUSNESS [None]
